FAERS Safety Report 21088549 (Version 1)
Quarter: 2022Q3

REPORT INFORMATION
  Report Type: Spontaneous
  Country: US (occurrence: None)
  Receive Date: 20220715
  Receipt Date: 20220715
  Transmission Date: 20221027
  Serious: No
  Sender: FDA-Public Use
  Company Number: None

PATIENT
  Age: 35 Year
  Sex: Male
  Weight: 76.5 kg

DRUGS (2)
  1. LAMOTRIGINE [Suspect]
     Active Substance: LAMOTRIGINE
     Indication: Depression
     Dosage: FREQUENCY : DAILY;?
     Route: 060
     Dates: start: 20220101, end: 20220228
  2. LAMOTRIGINE [Suspect]
     Active Substance: LAMOTRIGINE
     Indication: Depression
     Dosage: FREQUENCY : DAILY;?
     Route: 060
     Dates: start: 20220624, end: 20220715

REACTIONS (8)
  - Product substitution issue [None]
  - Insurance issue [None]
  - Depression [None]
  - Irritability [None]
  - Agitation [None]
  - Loss of personal independence in daily activities [None]
  - Apathy [None]
  - Impaired work ability [None]

NARRATIVE: CASE EVENT DATE: 20220715
